FAERS Safety Report 4423495-6 (Version None)
Quarter: 2004Q3

REPORT INFORMATION
  Report Type: 
  Country: None (occurrence: None)
  Receive Date: 20040806
  Receipt Date: 20040729
  Transmission Date: 20050211
  Serious: Yes (Hospitalization)
  Sender: FDA-Public Use
  Company Number: 200412360GDS

PATIENT
  Age: 56 Year
  Sex: Male
  Weight: 90 kg

DRUGS (15)
  1. AVELOX [Suspect]
     Indication: PNEUMONIA
     Dosage: 400 MG, TOTAL DAILY, INTRAVENOUS
     Route: 042
     Dates: start: 20040508, end: 20040515
  2. AVELOX [Suspect]
     Indication: PNEUMONIA
     Dosage: 400 MG, TOTAL DAILY, ORAL
     Route: 048
     Dates: start: 20040516, end: 20040520
  3. PERFUSALGAN [Concomitant]
  4. AMUKIN [Concomitant]
  5. VOLTAREN [Concomitant]
  6. FRAXIPARINE [Concomitant]
  7. ZANTAC [Concomitant]
  8. CATAFLAM [Concomitant]
  9. ACETAMINOPHEN [Concomitant]
  10. DUPHALAC /NET/ [Concomitant]
  11. DUOVEN [Concomitant]
  12. LYSOMUCIL [Concomitant]
  13. EUCALYPTOL [Concomitant]
  14. TEMESTA [Concomitant]
  15. LORAMET [Concomitant]

REACTIONS (6)
  - ABDOMINAL PAIN [None]
  - DIARRHOEA [None]
  - DIVERTICULITIS [None]
  - NAUSEA [None]
  - PERIDIVERTICULITIS [None]
  - REFUSAL OF TREATMENT BY PATIENT [None]
